FAERS Safety Report 22264069 (Version 7)
Quarter: 2024Q3

REPORT INFORMATION
  Report Type: Report from Study
  Country: GB (occurrence: GB)
  Receive Date: 20230428
  Receipt Date: 20240807
  Transmission Date: 20241016
  Serious: Yes (Death, Other)
  Sender: NOVARTIS
  Company Number: GB-002147023-NVSC2023GB096947

PATIENT
  Sex: Female
  Weight: 64 kg

DRUGS (1)
  1. LUTATHERA [Suspect]
     Active Substance: LUTETIUM OXODOTREOTIDE LU-177
     Indication: Neuroendocrine carcinoma metastatic
     Dosage: 7.4 MBQ (PER DOSE (TOTAL OF 4 DOSES)
     Route: 042
     Dates: start: 20191121, end: 20200611

REACTIONS (2)
  - Myelodysplastic syndrome [Fatal]
  - Pancytopenia [Fatal]

NARRATIVE: CASE EVENT DATE: 20210226
